FAERS Safety Report 21119151 (Version 1)
Quarter: 2022Q3

REPORT INFORMATION
  Report Type: Spontaneous
  Country: US (occurrence: None)
  Receive Date: 20220721
  Receipt Date: 20220721
  Transmission Date: 20221027
  Serious: Yes (Other)
  Sender: FDA-Public Use
  Company Number: None

PATIENT
  Age: 62 Year
  Sex: Male
  Weight: 85 kg

DRUGS (1)
  1. REMDESIVIR [Suspect]
     Active Substance: REMDESIVIR
     Indication: Upper respiratory tract infection
     Dosage: 100 MG EVERY DAY IV?
     Route: 042
     Dates: start: 20210725, end: 20210726

REACTIONS (1)
  - Seizure [None]

NARRATIVE: CASE EVENT DATE: 20210726
